FAERS Safety Report 5845230-7 (Version None)
Quarter: 2008Q3

REPORT INFORMATION
  Report Type: 
  Country: None (occurrence: None)
  Receive Date: 20080814
  Receipt Date: 20080812
  Transmission Date: 20090109
  Serious: Yes (Other)
  Sender: FDA-Public Use
  Company Number: B0522016A

PATIENT
  Age: 27 Year
  Sex: Female

DRUGS (4)
  1. PAXIL [Suspect]
     Indication: PANIC DISORDER
     Route: 048
     Dates: start: 20071201, end: 20080101
  2. PAXIL [Suspect]
     Route: 048
     Dates: start: 20080101, end: 20080101
  3. ALPRAZOLAM [Concomitant]
     Route: 048
     Dates: start: 20071201
  4. MYSLEE [Concomitant]
     Route: 048
     Dates: start: 20071201

REACTIONS (5)
  - ACTIVATION SYNDROME [None]
  - ANGER [None]
  - IRRITABILITY [None]
  - LOGORRHOEA [None]
  - PERSONALITY CHANGE [None]
